FAERS Safety Report 8120886-7 (Version None)
Quarter: 2012Q1

REPORT INFORMATION
  Report Type: 
  Country: None (occurrence: None)
  Receive Date: 20120203
  Receipt Date: 20120127
  Transmission Date: 20120608
  Serious: Yes (Congenital Anomaly)
  Sender: FDA-Public Use
  Company Number: 1000027564

PATIENT
  Sex: Male

DRUGS (1)
  1. CELEXA [Suspect]
     Dosage: TRANSPLACENTAL
     Route: 064

REACTIONS (6)
  - CONGENITAL MITRAL VALVE INCOMPETENCE [None]
  - PYLORIC STENOSIS [None]
  - CONGENITAL PULMONARY HYPERTENSION [None]
  - MATERNAL DRUGS AFFECTING FOETUS [None]
  - VENTRICULAR SEPTAL DEFECT [None]
  - COARCTATION OF THE AORTA [None]
